FAERS Safety Report 18286523 (Version 1)
Quarter: 2020Q3

REPORT INFORMATION
  Report Type: Spontaneous
  Country: US (occurrence: US)
  Receive Date: 20200920
  Receipt Date: 20200920
  Transmission Date: 20201103
  Serious: No
  Sender: FDA-Public Use
  Company Number: US-BAUSCH-BL-2020-025318

PATIENT
  Age: 43 Year
  Sex: Female
  Weight: 65.83 kg

DRUGS (4)
  1. ALTRENO [Suspect]
     Active Substance: TRETINOIN
     Indication: ACNE
     Dosage: STARTED USING APPROXIMATELY 90 DAYS AGO, FIRST TUBE
     Route: 061
     Dates: start: 2020, end: 2020
  2. SPIRONOLACTONE. [Concomitant]
     Active Substance: SPIRONOLACTONE
     Indication: PRODUCT USED FOR UNKNOWN INDICATION
  3. ALTRENO [Suspect]
     Active Substance: TRETINOIN
     Dosage: SECOND TUBE
     Route: 061
     Dates: start: 20200715, end: 20200815
  4. ALTRENO [Suspect]
     Active Substance: TRETINOIN
     Dosage: THIRD TUBE
     Route: 061
     Dates: start: 202008

REACTIONS (4)
  - Skin exfoliation [Unknown]
  - Drug ineffective [Unknown]
  - Dry skin [Unknown]
  - Product quality issue [Unknown]

NARRATIVE: CASE EVENT DATE: 2020
